FAERS Safety Report 6748614-8 (Version None)
Quarter: 2010Q2

REPORT INFORMATION
  Report Type: 
  Country: None (occurrence: None)
  Receive Date: 20100601
  Receipt Date: 20100527
  Transmission Date: 20101027
  Serious: Yes (Death, Hospitalization, Other)
  Sender: FDA-Public Use
  Company Number: LB-JNJFOC-20100510322

PATIENT
  Age: 73 Year
  Sex: Male

DRUGS (4)
  1. LEVOFLOXACIN [Suspect]
     Indication: LUNG INFILTRATION
     Route: 042
  2. HUMAN INSULIN [Suspect]
     Indication: DIABETES MELLITUS
     Route: 065
  3. DEPAKENE [Concomitant]
     Route: 065
  4. CLINDAMYCIN HYDROCHLORIDE [Concomitant]
     Route: 065

REACTIONS (2)
  - HYPOGLYCAEMIA [None]
  - MENINGOENCEPHALITIS HERPETIC [None]
